FAERS Safety Report 18040633 (Version 1)
Quarter: 2020Q3

REPORT INFORMATION
  Report Type: Spontaneous
  Country: US (occurrence: US)
  Receive Date: 20200717
  Receipt Date: 20200717
  Transmission Date: 20201103
  Serious: Yes (Death, Other)
  Sender: FDA-Public Use
  Company Number: US-GILEAD-2020-0483659

PATIENT
  Age: 85 Year
  Sex: Male
  Weight: 93.8 kg

DRUGS (10)
  1. PLASMA, FRESH FROZEN [Concomitant]
     Active Substance: HUMAN PLASMA
  2. VALSARTAN. [Concomitant]
     Active Substance: VALSARTAN
     Dosage: UNK
     Dates: start: 20200707
  3. DEXAMETHASONE. [Concomitant]
     Active Substance: DEXAMETHASONE
     Dosage: 6 MG, QD
  4. NORMAL SALINE [Concomitant]
     Active Substance: SODIUM CHLORIDE
     Dosage: 75 ML/HR
  5. REMDESIVIR. [Suspect]
     Active Substance: REMDESIVIR
     Indication: COVID-19
     Dosage: 200 MG
     Route: 042
     Dates: start: 20200706, end: 20200706
  6. REMDESIVIR. [Suspect]
     Active Substance: REMDESIVIR
     Dosage: 100 MG
     Route: 042
     Dates: start: 20200707, end: 20200707
  7. FUROSEMIDE. [Concomitant]
     Active Substance: FUROSEMIDE
     Dosage: UNK
     Dates: start: 20200701, end: 20200707
  8. SODIUM CHLORIDE 0.9% [Concomitant]
     Active Substance: SODIUM CHLORIDE
     Dosage: 500 ML
  9. OXYGEN. [Concomitant]
     Active Substance: OXYGEN
  10. ALBUMIN (LJUDSKI) 20% [Concomitant]
     Dosage: UNK
     Dates: start: 20200708

REACTIONS (8)
  - Unresponsive to stimuli [Unknown]
  - Cardiac arrest [Fatal]
  - Anuria [Unknown]
  - Hypothermia [Unknown]
  - Blood bilirubin increased [Unknown]
  - Respiratory arrest [Fatal]
  - Blood creatinine increased [Unknown]
  - Hypotension [Unknown]

NARRATIVE: CASE EVENT DATE: 20200707
